FAERS Safety Report 9630864 (Version 2)
Quarter: 2013Q4

REPORT INFORMATION
  Report Type: Spontaneous
  Country: GB (occurrence: GB)
  Receive Date: 20131018
  Receipt Date: 20131127
  Transmission Date: 20140711
  Serious: Yes (Hospitalization)
  Sender: FDA-Public Use
  Company Number: GB-JNJFOC-20131010490

PATIENT
  Age: 78 Year
  Sex: Male
  Weight: 175 kg

DRUGS (4)
  1. XARELTO [Suspect]
     Indication: THROMBOSIS PROPHYLAXIS
     Route: 048
     Dates: end: 20130928
  2. XARELTO [Suspect]
     Indication: KNEE ARTHROPLASTY
     Route: 048
     Dates: end: 20130928
  3. LIPITOR [Concomitant]
     Route: 065
  4. CANDESARTAN CILEXETIL [Concomitant]
     Route: 065

REACTIONS (5)
  - Blood creatinine increased [Recovered/Resolved]
  - Urinary retention [Unknown]
  - Abdominal distension [Unknown]
  - Dysuria [Unknown]
  - Chromaturia [Unknown]
